FAERS Safety Report 10279632 (Version 1)
Quarter: 2014Q3

REPORT INFORMATION
  Report Type: Spontaneous
  Country: CH (occurrence: None)
  Receive Date: 20140702
  Receipt Date: 20140702
  Transmission Date: 20150326
  Serious: Yes (Other)
  Sender: FDA-Public Use
  Company Number: 20140391

PATIENT
  Sex: Male

DRUGS (2)
  1. FERINJECT [Suspect]
     Active Substance: FERRIC CARBOXYMALTOSE
     Indication: PREOPERATIVE CARE
     Dosage: 1000 MG. 1 IN 1 TOTAL
     Route: 041
  2. FERINJECT [Suspect]
     Active Substance: FERRIC CARBOXYMALTOSE
     Dosage: 1000 MG. 1 IN 1 TOTAL
     Route: 041

REACTIONS (2)
  - Respiratory tract infection [None]
  - Post procedural complication [None]
